FAERS Safety Report 9075022 (Version 1)
Quarter: 2013Q1

REPORT INFORMATION
  Report Type: Report from Study
  Country: US (occurrence: US)
  Receive Date: 20130131
  Receipt Date: 20130131
  Transmission Date: 20140127
  Serious: No
  Sender: FDA-Public Use
  Company Number: US-ABBOTT-12P-163-1005352-00

PATIENT
  Age: 25 Year
  Sex: Male

DRUGS (3)
  1. HUMIRA [Suspect]
     Indication: CROHN^S DISEASE
     Dates: start: 20120810
  2. ANTIBIOTIC LOW DOSE [Concomitant]
     Indication: SKIN DISORDER
     Dosage: UNKNOWN DOSAGE, PATIENT THINKS IT^S 100MG
  3. VITAMIN D [Concomitant]
     Indication: ANAEMIA

REACTIONS (5)
  - Malaise [Recovered/Resolved]
  - Influenza like illness [Recovered/Resolved]
  - Nausea [Recovered/Resolved]
  - Fatigue [Recovered/Resolved]
  - Pyrexia [Recovered/Resolved]
